FAERS Safety Report 7231128-9 (Version None)
Quarter: 2011Q1

REPORT INFORMATION
  Report Type: 
  Country: None (occurrence: None)
  Receive Date: 20110107
  Receipt Date: 20101222
  Transmission Date: 20110831
  Serious: Yes (Life-Threatening, Hospitalization)
  Sender: FDA-Public Use
  Company Number: 2009050067

PATIENT
  Age: 51 Year
  Sex: Female
  Weight: 92 kg

DRUGS (15)
  1. ALDACTONE [Suspect]
     Indication: CARDIAC FAILURE
     Dosage: 100 MG (50 MG,2 IN 1 D), ORAL, 25 MG (25 MG, 1 IN 1 D), ORAL
     Route: 048
     Dates: start: 20080501, end: 20080902
  2. ALDACTONE [Suspect]
     Indication: CARDIAC FAILURE
     Dosage: 100 MG (50 MG,2 IN 1 D), ORAL, 25 MG (25 MG, 1 IN 1 D), ORAL
     Route: 048
     Dates: start: 20080903
  3. MAGNESIUM VERLA (MAGNESIUM HYDROGEN ASPARTATE) [Concomitant]
  4. TORSEMIDE [Suspect]
     Indication: CARDIAC FAILURE
     Dosage: 240 MG (120 MG, 2 IN 1 D), ORAL, 20 MG (20 MG, 1 IN 1 D), ORAL
     Route: 048
     Dates: start: 20080301, end: 20080701
  5. TORSEMIDE [Suspect]
     Indication: CARDIAC FAILURE
     Dosage: 240 MG (120 MG, 2 IN 1 D), ORAL, 20 MG (20 MG, 1 IN 1 D), ORAL
     Route: 048
     Dates: start: 20080701, end: 20080903
  6. AQUAPHOR (XIPAMIDE) [Suspect]
     Indication: CARDIAC FAILURE
     Dosage: 20 MG (20 MG, 1 IN 1 D), ORAL
     Route: 048
     Dates: start: 20080301, end: 20080903
  7. PREDNISOLONE [Suspect]
     Indication: HYPEREOSINOPHILIC SYNDROME
     Dosage: (100 MG DAILY THEN TAPERED TO 30 MG DAILY), ORAL
     Route: 048
     Dates: start: 20080301
  8. PANTOPRAZOLE SODIUM [Concomitant]
  9. FALITHROM (PHENPROCOUMON) [Concomitant]
  10. BISOPROLOL (BISOPROLOL) [Concomitant]
  11. SALBUTAMOL (SALBUTAMOL) [Suspect]
     Indication: ASTHMA
     Dosage: (100 MCG), (RESPIRATORY (INHALATION)
     Route: 055
     Dates: start: 20080201
  12. ASPIRIN [Concomitant]
  13. ROCALTROL [Concomitant]
  14. SYMBICORT TURUBUHALER ^DRACO^ (FORMOTEROL FUMARATE, BUDESONIDE) [Concomitant]
  15. CALCILAC KT (COLECALCIFEROL, CALCIUM CARBONATE) [Concomitant]

REACTIONS (10)
  - GENERAL PHYSICAL HEALTH DETERIORATION [None]
  - ELECTROLYTE IMBALANCE [None]
  - OEDEMA PERIPHERAL [None]
  - METABOLIC ALKALOSIS [None]
  - DRUG INTERACTION [None]
  - HYPOKALAEMIA [None]
  - FLUID RETENTION [None]
  - HYPONATRAEMIA [None]
  - WEIGHT INCREASED [None]
  - RESPIRATORY ALKALOSIS [None]
